FAERS Safety Report 7430448-2 (Version None)
Quarter: 2011Q2

REPORT INFORMATION
  Report Type: 
  Country: None (occurrence: None)
  Receive Date: 20110421
  Receipt Date: 20101116
  Transmission Date: 20111010
  Serious: Yes (Hospitalization)
  Sender: FDA-Public Use
  Company Number: US-ASTRAZENECA-2010SE54756

PATIENT
  Age: 78 Year
  Sex: Male

DRUGS (13)
  1. TOPROL-XL [Suspect]
     Indication: HYPERTENSION
     Route: 048
     Dates: start: 20060101
  2. WARFARIN [Concomitant]
     Indication: CARDIAC FAILURE CONGESTIVE
     Route: 048
  3. STOOL SOFTENER [Concomitant]
     Indication: CONSTIPATION
     Route: 048
     Dates: start: 20040101
  4. LISINOPRIL [Concomitant]
     Indication: HYPERTENSION
     Route: 048
     Dates: start: 20060101
  5. FLUOXETINE [Concomitant]
     Indication: DEPRESSION
     Route: 048
     Dates: start: 20060101
  6. FUROSEMIDE [Concomitant]
     Indication: DIURETIC THERAPY
     Route: 048
     Dates: start: 20060101
  7. FUROSEMIDE [Concomitant]
     Indication: HYPERTENSION
     Route: 048
     Dates: start: 20060101
  8. ASPIRIN [Concomitant]
     Indication: PROPHYLAXIS
     Route: 048
     Dates: start: 20060101
  9. METFORMIN [Concomitant]
     Indication: DIABETES MELLITUS
     Route: 048
     Dates: start: 20090815
  10. TOPROL-XL [Suspect]
     Indication: ORTHOSTATIC HYPOTENSION
     Route: 048
     Dates: start: 20060101
  11. VEGF TRAP [Suspect]
     Indication: MACULAR DEGENERATION
     Dosage: 0.5 MG OR 2 MG EVERY FOR WEEKS
     Route: 065
     Dates: start: 20081204, end: 20091104
  12. VEGF TRAP [Suspect]
     Dosage: 0.5 MG OR 2 MG EVERY FOUR TO TWELVE WEEKS AS NEEDED
     Dates: start: 20100518
  13. TRAVATAN OS [Concomitant]
     Indication: GLAUCOMA
     Route: 047
     Dates: start: 20100518

REACTIONS (2)
  - ORTHOSTATIC HYPOTENSION [None]
  - CARDIAC FAILURE CONGESTIVE [None]
